FAERS Safety Report 9524823 (Version 2)
Quarter: 2013Q3

REPORT INFORMATION
  Report Type: Spontaneous
  Country: GB (occurrence: GB)
  Receive Date: 20130916
  Receipt Date: 20130919
  Transmission Date: 20140515
  Serious: Yes (Other)
  Sender: FDA-Public Use
  Company Number: GB-PFIZER INC-2013260821

PATIENT
  Age: 20 Week
  Sex: 0

DRUGS (1)
  1. ONDANSETRON HCL [Suspect]
     Indication: PRODUCT USED FOR UNKNOWN INDICATION
     Dosage: 4 MG, 3X/DAY
     Route: 064
     Dates: start: 20130301, end: 20130518

REACTIONS (2)
  - Foetal exposure during pregnancy [Recovered/Resolved]
  - Intestinal obstruction [Recovered/Resolved]
